FAERS Safety Report 11104477 (Version 2)
Quarter: 2016Q3

REPORT INFORMATION
  Report Type: Spontaneous
  Country: US (occurrence: US)
  Receive Date: 20150511
  Receipt Date: 20160823
  Transmission Date: 20161109
  Serious: Yes (Hospitalization, Other)
  Sender: FDA-Public Use
  Company Number: US-ABBVIE-15P-163-1386329-00

PATIENT
  Sex: Female

DRUGS (1)
  1. CREON [Suspect]
     Active Substance: PANCRELIPASE AMYLASE\PANCRELIPASE LIPASE\PANCRELIPASE PROTEASE
     Indication: PANCREATIC INSUFFICIENCY
     Route: 065

REACTIONS (7)
  - Adhesion [Unknown]
  - Pancreatic enzyme abnormality [Unknown]
  - Frustration tolerance decreased [Unknown]
  - Pancreatitis [Unknown]
  - Anal incontinence [Unknown]
  - Pain [Unknown]
  - Abdominal pain [Unknown]
